FAERS Safety Report 25074199 (Version 1)
Quarter: 2025Q1

REPORT INFORMATION
  Report Type: Spontaneous
  Country: US (occurrence: None)
  Receive Date: 20250313
  Receipt Date: 20250313
  Transmission Date: 20250409
  Serious: Yes (Death, Hospitalization)
  Sender: FDA-CTU
  Company Number: None

PATIENT
  Age: 54 Year
  Sex: Male
  Weight: 119 kg

DRUGS (1)
  1. LENALIDOMIDE [Suspect]
     Active Substance: LENALIDOMIDE

REACTIONS (7)
  - Back pain [None]
  - Pain [None]
  - Pneumonia [None]
  - Unresponsive to stimuli [None]
  - Cardio-respiratory arrest [None]
  - Cardiac arrest [None]
  - Pulse absent [None]

NARRATIVE: CASE EVENT DATE: 20250115
